FAERS Safety Report 11145677 (Version 1)
Quarter: 2015Q2

REPORT INFORMATION
  Report Type: Spontaneous
  Country: US (occurrence: None)
  Receive Date: 20150527
  Receipt Date: 20150527
  Transmission Date: 20150821
  Serious: Yes (Hospitalization)
  Sender: FDA-Public Use
  Company Number: None

PATIENT
  Age: 51 Year
  Sex: Female
  Weight: 110.6 kg

DRUGS (1)
  1. LENALIDOMIDE [Suspect]
     Active Substance: LENALIDOMIDE
     Indication: DIFFUSE LARGE B-CELL LYMPHOMA
     Dosage: DAILY FOR 14 DAYS
     Route: 048
     Dates: start: 20150513, end: 20150524

REACTIONS (3)
  - Insomnia [None]
  - Pulmonary embolism [None]
  - Laboratory test abnormal [None]

NARRATIVE: CASE EVENT DATE: 20150525
